FAERS Safety Report 11228544 (Version 2)
Quarter: 2015Q3

REPORT INFORMATION
  Report Type: Spontaneous
  Country: IT (occurrence: IT)
  Receive Date: 20150630
  Receipt Date: 20150805
  Transmission Date: 20151125
  Serious: Yes (Other)
  Sender: FDA-Public Use
  Company Number: IT-SA-2015SA094068

PATIENT
  Age: 59 Year
  Sex: Female

DRUGS (5)
  1. ARAVA [Suspect]
     Active Substance: LEFLUNOMIDE
     Indication: RHEUMATOID ARTHRITIS
     Route: 048
     Dates: start: 20130527, end: 20141105
  2. PRITOR [Concomitant]
     Active Substance: TELMISARTAN
  3. PREDNISONE. [Concomitant]
     Active Substance: PREDNISONE
  4. COUMADIN [Concomitant]
     Active Substance: WARFARIN SODIUM
  5. AMIODAR [Concomitant]
     Active Substance: AMIODARONE

REACTIONS (1)
  - Transient ischaemic attack [Recovered/Resolved]

NARRATIVE: CASE EVENT DATE: 20141105
